FAERS Safety Report 9419855 (Version 1)
Quarter: 2013Q3

REPORT INFORMATION
  Report Type: Spontaneous
  Country: US (occurrence: US)
  Receive Date: 20130725
  Receipt Date: 20130725
  Transmission Date: 20140515
  Serious: Yes (Hospitalization)
  Sender: FDA-Public Use
  Company Number: US-B.I. PHARMACEUTICALS,INC./RIDGEFIELD-2013-BI-21660BP

PATIENT
  Age: 63 Year
  Sex: Female
  Weight: 87 kg

DRUGS (4)
  1. SPIRIVA [Suspect]
     Indication: EMPHYSEMA
     Dosage: 18 MCG
     Route: 055
     Dates: start: 2012
  2. BENICAR [Concomitant]
     Indication: HYPERTENSION
     Dosage: STRENGTH: 40-25MG; DAILY DOSE: 40-25MG
     Route: 048
  3. LOPRESSOR [Concomitant]
     Indication: HYPERTENSION
     Dosage: 100 MG
     Route: 048
  4. IBUPROFEN [Concomitant]
     Indication: ARTHRALGIA
     Dosage: FORMULATION: CAPLET
     Route: 048

REACTIONS (1)
  - Arthritis [Recovered/Resolved]
